FAERS Safety Report 8132820-4 (Version None)
Quarter: 2012Q1

REPORT INFORMATION
  Report Type: 
  Country: None (occurrence: None)
  Receive Date: 20120213
  Receipt Date: 20120202
  Transmission Date: 20120608
  Serious: Yes (Other)
  Sender: FDA-Public Use
  Company Number: US-JNJFOC-20120202843

PATIENT
  Age: 64 Year
  Sex: Male
  Weight: 90.72 kg

DRUGS (4)
  1. ACETAMINOPHEN [Suspect]
     Route: 048
  2. PRILOSEC [Concomitant]
     Indication: GASTROOESOPHAGEAL REFLUX DISEASE
     Dosage: 6-7 YEARS AGO
     Route: 065
  3. TOPROL-XL [Concomitant]
     Indication: HYPERTENSION
     Route: 065
     Dates: start: 20100101
  4. ACETAMINOPHEN [Suspect]
     Indication: ARTHRITIS
     Dosage: 2 CAPLETS TWICE A DAY AND OCCASIONALLY PRIOR TO THESE TWO WEEKS.
     Route: 048
     Dates: end: 20120202

REACTIONS (2)
  - BLOOD PRESSURE INCREASED [None]
  - POOR QUALITY SLEEP [None]
